FAERS Safety Report 10606341 (Version 3)
Quarter: 2014Q4

REPORT INFORMATION
  Report Type: Spontaneous
  Country: RS (occurrence: RS)
  Receive Date: 20141125
  Receipt Date: 20141218
  Transmission Date: 20150529
  Serious: Yes (Life-Threatening, Hospitalization, Other)
  Sender: FDA-Public Use
  Company Number: RS-JNJFOC-20141112204

PATIENT
  Age: 79 Year
  Sex: Female

DRUGS (4)
  1. XARELTO [Suspect]
     Active Substance: RIVAROXABAN
     Indication: THROMBOSIS PROPHYLAXIS
     Route: 048
     Dates: start: 20140921, end: 20141014
  2. XARELTO [Suspect]
     Active Substance: RIVAROXABAN
     Indication: ORTHOPAEDIC PROCEDURE
     Route: 048
     Dates: start: 20140921, end: 20141014
  3. XARELTO [Suspect]
     Active Substance: RIVAROXABAN
     Indication: FEMUR FRACTURE
     Route: 048
     Dates: start: 20140921, end: 20141014
  4. XARELTO [Suspect]
     Active Substance: RIVAROXABAN
     Indication: FRACTURE TREATMENT
     Route: 048
     Dates: start: 20140921, end: 20141014

REACTIONS (2)
  - Pulmonary embolism [Recovered/Resolved]
  - Off label use [Unknown]

NARRATIVE: CASE EVENT DATE: 20140921
